FAERS Safety Report 14486327 (Version 1)
Quarter: 2018Q1

REPORT INFORMATION
  Report Type: Spontaneous
  Country: US (occurrence: US)
  Receive Date: 20180203
  Receipt Date: 20180203
  Transmission Date: 20180509
  Serious: Yes (Hospitalization)
  Sender: FDA-Public Use
  Company Number: None

PATIENT
  Sex: Male

DRUGS (7)
  1. TOPIRAMATE. [Concomitant]
     Active Substance: TOPIRAMATE
  2. SIMPONI [Suspect]
     Active Substance: GOLIMUMAB
     Indication: RHEUMATOID ARTHRITIS
     Dosage: OTHER FREQUENCY:Q 4 W;?
     Route: 058
     Dates: start: 20180120
  3. COLAZAL [Concomitant]
     Active Substance: BALSALAZIDE DISODIUM
  4. KLONOPIN [Concomitant]
     Active Substance: CLONAZEPAM
  5. HYDROCHLOROT [Concomitant]
     Active Substance: HYDROCHLOROTHIAZIDE
  6. EPIPEN [Concomitant]
     Active Substance: EPINEPHRINE
  7. ZOLOFT [Concomitant]
     Active Substance: SERTRALINE HYDROCHLORIDE

REACTIONS (3)
  - Anaphylactic reaction [None]
  - Hypoaesthesia [None]
  - Pharyngeal oedema [None]
